FAERS Safety Report 5956567-5 (Version None)
Quarter: 2008Q4

REPORT INFORMATION
  Report Type: 
  Country: None (occurrence: None)
  Receive Date: 20081103
  Receipt Date: 20080408
  Transmission Date: 20090506
  Serious: Yes (Other)
  Sender: FDA-Public Use
  Company Number: DSA_31694_2008

PATIENT
  Sex: Male

DRUGS (2)
  1. ATIVAN [Suspect]
     Indication: DRUG USE FOR UNKNOWN INDICATION
     Dosage: (DF)
     Dates: end: 20051001
  2. BENZODIAZEPINES [Concomitant]

REACTIONS (2)
  - NERVOUS SYSTEM DISORDER [None]
  - WITHDRAWAL SYNDROME [None]
